FAERS Safety Report 6754803-9 (Version None)
Quarter: 2010Q2

REPORT INFORMATION
  Report Type: 
  Country: None (occurrence: None)
  Receive Date: 20100601
  Receipt Date: 20100521
  Transmission Date: 20101027
  Serious: Yes (Hospitalization, Other)
  Sender: FDA-Public Use
  Company Number: 167-20484-09071614

PATIENT
  Age: 37 Year
  Sex: Female

DRUGS (12)
  1. INNOHEP [Suspect]
     Indication: PULMONARY EMBOLISM
     Dosage: SEE IMAGE
     Route: 058
     Dates: end: 20001207
  2. INNOHEP [Suspect]
     Indication: PULMONARY EMBOLISM
     Dosage: SEE IMAGE
     Route: 058
     Dates: start: 20001207, end: 20001215
  3. INNOHEP [Suspect]
     Indication: PULMONARY EMBOLISM
     Dosage: SEE IMAGE
     Route: 058
     Dates: start: 20001215, end: 20010126
  4. INNOHEP [Suspect]
     Indication: PULMONARY EMBOLISM
     Dosage: SEE IMAGE
     Route: 058
     Dates: start: 20010127, end: 20010128
  5. INNOHEP [Suspect]
     Indication: PULMONARY EMBOLISM
     Dosage: SEE IMAGE
     Route: 058
     Dates: start: 20010128, end: 20010206
  6. FERROUS SULFATE TAB [Concomitant]
  7. RANITIDINE [Concomitant]
  8. GAVISCON (SODIUM BICARBONATE, ALUMINUM HYDROXIDE GEL, DRIED, ALGINIC A [Concomitant]
  9. MAXOLON [Concomitant]
  10. KAPAKE (CODEINE PHOSPHATE, PARACETAMOL) [Concomitant]
  11. ENTONOX (OXYGEN, NITROUS OXIDE) [Concomitant]
  12. SYNTOMETRINE (OXYTOCIN, ERGOMETRINE) [Concomitant]

REACTIONS (5)
  - ANAEMIA [None]
  - DRUG EXPOSURE DURING PREGNANCY [None]
  - EPISTAXIS [None]
  - POSTPARTUM HAEMORRHAGE [None]
  - VULVAL ABSCESS [None]
